FAERS Safety Report 14307399 (Version 1)
Quarter: 2017Q4

REPORT INFORMATION
  Report Type: Spontaneous
  Country: US (occurrence: US)
  Receive Date: 20171219
  Receipt Date: 20171219
  Transmission Date: 20180321
  Serious: Yes (Hospitalization)
  Sender: FDA-Public Use
  Company Number: None

PATIENT
  Sex: Female

DRUGS (1)
  1. BENLYSTA [Suspect]
     Active Substance: BELIMUMAB
     Indication: SYSTEMIC LUPUS ERYTHEMATOSUS
     Dosage: ?          OTHER FREQUENCY:Q 4 WEEKS;?
     Route: 042
     Dates: start: 20171010

REACTIONS (8)
  - Asthenia [None]
  - Blood pressure increased [None]
  - Disorientation [None]
  - Headache [None]
  - Dehydration [None]
  - Abdominal discomfort [None]
  - Fatigue [None]
  - Amnesia [None]
